FAERS Safety Report 9179316 (Version 4)
Quarter: 2013Q2

REPORT INFORMATION
  Report Type: Spontaneous
  Country: JP (occurrence: JP)
  Receive Date: 20130321
  Receipt Date: 20130522
  Transmission Date: 20140414
  Serious: No
  Sender: FDA-Public Use
  Company Number: JP-PFIZER INC-2013089289

PATIENT
  Age: 56 Year
  Sex: Male

DRUGS (4)
  1. ZITHROMAC [Suspect]
     Indication: PHARYNGITIS
     Dosage: 500 MG, 1X/DAY
     Route: 048
     Dates: start: 20130308, end: 20130310
  2. BRUFEN [Concomitant]
     Indication: UPPER RESPIRATORY TRACT INFLAMMATION
     Dosage: 400 MG, 1X/DAY
     Route: 048
     Dates: start: 20130228, end: 20130311
  3. HOKUNALIN [Concomitant]
     Indication: UPPER RESPIRATORY TRACT INFLAMMATION
     Dosage: 2 MG, 1X/DAY
     Route: 062
     Dates: start: 20130228, end: 20130311
  4. FLOMOX [Concomitant]
     Indication: PHARYNGITIS
     Dosage: 300 MG, 1X/DAY
     Route: 048
     Dates: start: 20130228, end: 20130307

REACTIONS (1)
  - Abdominal pain [Recovering/Resolving]
